FAERS Safety Report 5580388-9 (Version None)
Quarter: 2008Q1

REPORT INFORMATION
  Report Type: 
  Country: None (occurrence: None)
  Receive Date: 20080103
  Receipt Date: 20071226
  Transmission Date: 20080703
  Serious: Yes (Other)
  Sender: FDA-Public Use
  Company Number: RU-ROCHE-538773

PATIENT
  Age: 32 Year
  Sex: Male
  Weight: 103 kg

DRUGS (2)
  1. PEG-INTERFERON ALFA 2A (RO 25-8310) [Suspect]
     Dosage: DOSAGE FORM VIAL.
     Route: 058
     Dates: start: 20070904, end: 20071225
  2. RIBAVIRIN [Suspect]
     Route: 048
     Dates: start: 20070904, end: 20071225

REACTIONS (1)
  - ALVEOLITIS FIBROSING [None]
